FAERS Safety Report 15929799 (Version 5)
Quarter: 2021Q3

REPORT INFORMATION
  Report Type: Spontaneous
  Country: JP (occurrence: JP)
  Receive Date: 20190206
  Receipt Date: 20210826
  Transmission Date: 20211014
  Serious: Yes (Hospitalization, Other)
  Sender: FDA-Public Use
  Company Number: JP-BRISTOL-MYERS SQUIBB COMPANY-BMS-2018-121996

PATIENT
  Age: 77 Year
  Sex: Female

DRUGS (10)
  1. TRAMAL [Concomitant]
     Active Substance: TRAMADOL
     Indication: PAIN
     Dosage: 25 MILLIGRAM, TID
     Route: 048
     Dates: start: 20190129, end: 20190318
  2. MIYA?BM [Concomitant]
     Active Substance: CLOSTRIDIUM BUTYRICUM SPORES STRAIN M-55
     Indication: DIARRHOEA
     Dosage: 1 GRAM, TID
     Route: 048
     Dates: start: 20190206, end: 20190429
  3. YERVOY [Suspect]
     Active Substance: IPILIMUMAB
     Indication: RENAL CELL CARCINOMA
     Dosage: 42.6 MILLIGRAM
     Route: 041
     Dates: start: 20181120
  4. OPDIVO [Suspect]
     Active Substance: NIVOLUMAB
     Indication: RENAL CELL CARCINOMA
     Dosage: 240 MILLIGRAM
     Route: 041
     Dates: start: 20181120
  5. CALONAL [Concomitant]
     Active Substance: ACETAMINOPHEN
     Indication: PAIN
     Dosage: 500 MILLIGRAM, TID
     Route: 048
     Dates: start: 20190128, end: 20190318
  6. NAIXAN [NAPROXEN] [Concomitant]
     Active Substance: NAPROXEN
     Indication: PYREXIA
     Dosage: 100 MILLIGRAM, TID
     Route: 048
     Dates: start: 20181127, end: 20190114
  7. MEDROL [Concomitant]
     Active Substance: METHYLPREDNISOLONE
     Indication: ALLERGY PROPHYLAXIS
     Dosage: 32 MILLIGRAM, QD
     Route: 048
     Dates: start: 20190709, end: 20190710
  8. LANSOPRAZOLE. [Concomitant]
     Active Substance: LANSOPRAZOLE
     Indication: GASTROINTESTINAL DISORDER PROPHYLAXIS
     Dosage: 15 MILLIGRAM, QD
     Route: 048
     Dates: start: 20181127, end: 20190401
  9. ANTEBATE [Concomitant]
     Active Substance: BETAMETHASONE DIPROPIONATE
     Indication: TOXIC SKIN ERUPTION
     Dosage: UNK
     Route: 003
     Dates: start: 20181225, end: 20190131
  10. POLAPREZINC [Concomitant]
     Active Substance: POLAPREZINC
     Indication: ZINC DEFICIENCY
     Dosage: 75 MILLIGRAM, QD
     Route: 048
     Dates: end: 20190304

REACTIONS (3)
  - Toxic skin eruption [Recovering/Resolving]
  - Malaise [Recovered/Resolved]
  - Haematuria [Recovering/Resolving]

NARRATIVE: CASE EVENT DATE: 20181218
